FAERS Safety Report 7816957 (Version 2)
Quarter: 2013Q3

REPORT INFORMATION
  Report Type: Spontaneous
  Country: US (occurrence: US)
  Receive Date: 20110217
  Receipt Date: 20130705
  Transmission Date: 20140515
  Serious: Yes (Hospitalization, Other)
  Sender: FDA-Public Use
  Company Number: US-ROCHE-731108

PATIENT
  Age: 17 Year
  Sex: Male
  Weight: 52.2 kg

DRUGS (2)
  1. ACCUTANE [Suspect]
     Indication: ACNE
     Route: 048
     Dates: start: 20050526, end: 200512
  2. AMOXICILLIN [Concomitant]

REACTIONS (12)
  - Colitis ulcerative [Unknown]
  - Inflammatory bowel disease [Not Recovered/Not Resolved]
  - Stress [Unknown]
  - Large intestine polyp [Unknown]
  - Small intestinal obstruction [Unknown]
  - Depression [Unknown]
  - Irritable bowel syndrome [Unknown]
  - Haemorrhoids [Unknown]
  - Pharyngitis streptococcal [Unknown]
  - Arthralgia [Unknown]
  - Nail infection [Unknown]
  - Blood triglycerides increased [Recovered/Resolved]
